FAERS Safety Report 14783897 (Version 1)
Quarter: 2018Q2

REPORT INFORMATION
  Report Type: Report from Study
  Country: US (occurrence: US)
  Receive Date: 20180420
  Receipt Date: 20180420
  Transmission Date: 20180711
  Serious: Yes (Hospitalization)
  Sender: FDA-Public Use
  Company Number: US-BAYER-2017-249899

PATIENT
  Age: 69 Year
  Sex: Male

DRUGS (1)
  1. NEXAVAR [Suspect]
     Active Substance: SORAFENIB
     Indication: HEPATOMEGALY
     Dosage: 400 MG, BID
     Route: 048
     Dates: start: 20171115

REACTIONS (5)
  - Off label use [None]
  - Drug dose omission [None]
  - Hospitalisation [None]
  - Product use in unapproved indication [None]
  - Product use issue [None]

NARRATIVE: CASE EVENT DATE: 2017
